FAERS Safety Report 6407796-8 (Version None)
Quarter: 2009Q4

REPORT INFORMATION
  Report Type: 
  Country: None (occurrence: None)
  Receive Date: 20091015
  Receipt Date: 20090930
  Transmission Date: 20100525
  Serious: Yes (Hospitalization)
  Sender: FDA-Public Use
  Company Number: DSJ-2009-10507

PATIENT
  Age: 57 Year
  Sex: Male

DRUGS (3)
  1. OLMESARTAN MEDOXOMIL [Suspect]
     Indication: HYPERTENSION
     Dosage: 20 MG (20 MG,1 IN 1 D),PER ORAL
     Route: 048
     Dates: start: 20090603
  2. CALBLOCK (AZELNIDIPINE) (TABLET) (AZELNIDIPINE) [Suspect]
     Indication: HYPERTENSION
     Dosage: 8 MG (8 MG,1 IN 1 D),PER ORAL
     Route: 048
     Dates: start: 20090717, end: 20090803
  3. MYSELL (ZOLPIDEM TARTRATE) (TABLET) - (ZOLPIDEM TARTRATE) [Concomitant]

REACTIONS (3)
  - HYPOGLYCAEMIA [None]
  - MUSCLE SPASMS [None]
  - TREMOR [None]
